FAERS Safety Report 10952431 (Version 1)
Quarter: 2015Q1

REPORT INFORMATION
  Report Type: Report from Study
  Country: US (occurrence: US)
  Receive Date: 20150325
  Receipt Date: 20150325
  Transmission Date: 20150721
  Serious: Yes (Hospitalization)
  Sender: FDA-Public Use
  Company Number: US-BIOGENIDEC-2015BI037408

PATIENT
  Age: 68 Year
  Sex: Female
  Weight: 80 kg

DRUGS (6)
  1. TECFIDERA [Suspect]
     Active Substance: DIMETHYL FUMARATE
     Indication: MULTIPLE SCLEROSIS
     Route: 048
  2. TECFIDERA [Suspect]
     Active Substance: DIMETHYL FUMARATE
     Indication: MULTIPLE SCLEROSIS
     Route: 048
     Dates: start: 20150212
  3. OXYBUTYNIN [Concomitant]
     Active Substance: OXYBUTYNIN
  4. ALEVE [Concomitant]
     Active Substance: NAPROXEN SODIUM
  5. LEVOTHYROXINE [Concomitant]
     Active Substance: LEVOTHYROXINE
  6. METHOCARBAMOL. [Concomitant]
     Active Substance: METHOCARBAMOL

REACTIONS (5)
  - Diarrhoea [Recovered/Resolved]
  - Sciatica [Recovered/Resolved]
  - Intentional underdose [Not Recovered/Not Resolved]
  - Spinal column stenosis [Recovered/Resolved]
  - Flushing [Recovered/Resolved]

NARRATIVE: CASE EVENT DATE: 20150212
